FAERS Safety Report 20920585 (Version 3)
Quarter: 2022Q4

REPORT INFORMATION
  Report Type: Report from Study
  Country: CA (occurrence: CA)
  Receive Date: 20220606
  Receipt Date: 20221213
  Transmission Date: 20230112
  Serious: Yes (Other)
  Sender: FDA-Public Use
  Company Number: CA-BRISTOL-MYERS SQUIBB COMPANY-2022-052032

PATIENT
  Age: 85 Year
  Sex: Male
  Weight: 86.6 kg

DRUGS (3)
  1. REBLOZYL [Suspect]
     Active Substance: LUSPATERCEPT-AAMT
     Indication: Myelodysplastic syndrome
     Dosage: FREQUENCY: 1/3 WEEKS
     Route: 058
     Dates: start: 20210818
  2. REBLOZYL [Suspect]
     Active Substance: LUSPATERCEPT-AAMT
  3. REBLOZYL [Suspect]
     Active Substance: LUSPATERCEPT-AAMT

REACTIONS (3)
  - Drug ineffective [Recovering/Resolving]
  - Haemoglobin decreased [Recovering/Resolving]
  - Atrial flutter [Recovering/Resolving]
